FAERS Safety Report 11338851 (Version 1)
Quarter: 2015Q3

REPORT INFORMATION
  Report Type: Spontaneous
  Country: US (occurrence: US)
  Receive Date: 20150803
  Receipt Date: 20150803
  Transmission Date: 20151125
  Serious: No
  Sender: FDA-Public Use
  Company Number: US-ELI_LILLY_AND_COMPANY-US200801004267

PATIENT
  Age: 44 Year
  Sex: Male

DRUGS (3)
  1. STRATTERA [Suspect]
     Active Substance: ATOMOXETINE HYDROCHLORIDE
     Dosage: 80 MG, UNK
     Dates: start: 20080121
  2. LISINOPRIL. [Concomitant]
     Active Substance: LISINOPRIL
  3. STRATTERA [Suspect]
     Active Substance: ATOMOXETINE HYDROCHLORIDE
     Indication: DISTURBANCE IN ATTENTION
     Dosage: 40 MG, UNK
     Dates: start: 20080114, end: 20080120

REACTIONS (7)
  - Anorgasmia [Unknown]
  - Testicular pain [Not Recovered/Not Resolved]
  - Testicular retraction [Not Recovered/Not Resolved]
  - Erectile dysfunction [Not Recovered/Not Resolved]
  - Ejaculation failure [Not Recovered/Not Resolved]
  - Drug ineffective [Not Recovered/Not Resolved]
  - Ejaculation delayed [Unknown]

NARRATIVE: CASE EVENT DATE: 200801
